FAERS Safety Report 16256240 (Version 2)
Quarter: 2019Q2

REPORT INFORMATION
  Report Type: Spontaneous
  Country: US (occurrence: US)
  Receive Date: 20190430
  Receipt Date: 20190627
  Transmission Date: 20190711
  Serious: No
  Sender: FDA-Public Use
  Company Number: US-PFIZER INC-2019177863

PATIENT
  Age: 57 Year
  Sex: Female

DRUGS (11)
  1. ATORVASTATIN [Concomitant]
     Active Substance: ATORVASTATIN
     Dosage: 20 MG, 1X/DAY [1 QPM (EVERY AFTERNOON OR EVENING)]
  2. HYDROCODONE [Concomitant]
     Active Substance: HYDROCODONE
     Indication: BREAKTHROUGH PAIN
     Dosage: UNK, AS NEEDED (5/325 MG 1 PRN)
  3. WARFARIN [Concomitant]
     Active Substance: WARFARIN
     Dosage: UNK [QPM (EVERY AFTERNOON OR EVENING)]
  4. GABAPENTIN. [Suspect]
     Active Substance: GABAPENTIN
     Indication: FOOT AMPUTATION
     Dosage: 900 MG, 2X/DAY
     Dates: start: 201406, end: 2018
  5. ASA [Concomitant]
     Active Substance: ASPIRIN
     Dosage: 81 MG, 1X/DAY [1 QAM (EVERY MORNING)]
  6. AMLODIPINE [Concomitant]
     Active Substance: AMLODIPINE BESYLATE
     Dosage: 10 MG, 1X/DAY [1 QAM (EVERY MORNING)]
  7. BUPROPION HYDROCHLORIDE XL [Concomitant]
     Active Substance: BUPROPION HYDROCHLORIDE
     Dosage: 450 MG, 1X/DAY [150 MG, 300 MG QAM (EVERY MORNING)]
  8. DULOXETINE. [Concomitant]
     Active Substance: DULOXETINE
     Dosage: 120 MG, 1X/DAY  [60 MG 2 CAPS QAM (EVERY MORNING)]
  9. MELATONIN [Concomitant]
     Active Substance: MELATONIN
     Dosage: 4 MG, 1X/DAY [QHS (BEFORE BED)]
  10. GABAPENTIN. [Suspect]
     Active Substance: GABAPENTIN
     Indication: COMPLEX REGIONAL PAIN SYNDROME
     Dosage: 600 MG, 3X/DAY (600 THREE TIMES A DAY)
  11. LISINOPRIL. [Concomitant]
     Active Substance: LISINOPRIL
     Dosage: 20 MG, 1X/DAY [1 QAM (EVERY MORNING)]

REACTIONS (2)
  - Drug ineffective for unapproved indication [Unknown]
  - Off label use [Unknown]

NARRATIVE: CASE EVENT DATE: 201406
